FAERS Safety Report 11771872 (Version 1)
Quarter: 2015Q4

REPORT INFORMATION
  Report Type: Spontaneous
  Country: US (occurrence: US)
  Receive Date: 20151124
  Receipt Date: 20151124
  Transmission Date: 20160304
  Serious: No
  Sender: FDA-Public Use
  Company Number: US-PFIZER INC-2015398665

PATIENT
  Age: 26 Year
  Sex: Female
  Weight: 65.77 kg

DRUGS (4)
  1. ZOLOFT [Suspect]
     Active Substance: SERTRALINE HYDROCHLORIDE
     Dosage: 200 MG, UNK
  2. KLONOPIN [Concomitant]
     Active Substance: CLONAZEPAM
     Dosage: 0.5 MG, UNK
  3. EFFEXOR XR [Suspect]
     Active Substance: VENLAFAXINE HYDROCHLORIDE
     Indication: DEPRESSION
     Dosage: 150 MG, 1X/DAY
     Dates: start: 201510, end: 20151109
  4. PROZAC [Concomitant]
     Active Substance: FLUOXETINE HYDROCHLORIDE
     Dosage: 20 MG, UNK

REACTIONS (9)
  - Erythema [Unknown]
  - Abnormal dreams [Unknown]
  - Confusional state [Unknown]
  - Hormone level abnormal [Unknown]
  - Renal disorder [Unknown]
  - Crying [Unknown]
  - Dyspepsia [Unknown]
  - Constipation [Unknown]
  - Hypotension [Unknown]
